FAERS Safety Report 8619956-6 (Version None)
Quarter: 2012Q3

REPORT INFORMATION
  Report Type: 
  Country: None (occurrence: None)
  Receive Date: 20120816
  Receipt Date: 20120816
  Transmission Date: 20120928
  Serious: No
  Sender: FDA-Public Use
  Company Number: None

PATIENT
  Age: 21 Year
  Sex: Female
  Weight: 47.6277 kg

DRUGS (1)
  1. CALDOLOR [Suspect]
     Dosage: 800 MG ONCE IV
     Route: 042
     Dates: start: 20120621, end: 20120621

REACTIONS (2)
  - MUSCULOSKELETAL DISCOMFORT [None]
  - JOINT RANGE OF MOTION DECREASED [None]
